FAERS Safety Report 6554318-7 (Version None)
Quarter: 2010Q1

REPORT INFORMATION
  Report Type: 
  Country: None (occurrence: None)
  Receive Date: 20100125
  Receipt Date: 20100125
  Transmission Date: 20100710
  Serious: Yes (Other)
  Sender: FDA-Public Use
  Company Number: None

PATIENT
  Age: 39 Year
  Sex: Female
  Weight: 61.2356 kg

DRUGS (1)
  1. SINGULAIR [Suspect]
     Dosage: 10MG ONCE A DAY PO
     Route: 048
     Dates: start: 20100101, end: 20100119

REACTIONS (2)
  - DEPRESSION [None]
  - SUICIDAL IDEATION [None]
